FAERS Safety Report 11641093 (Version 1)
Quarter: 2015Q4

REPORT INFORMATION
  Report Type: Spontaneous
  Country: US (occurrence: None)
  Receive Date: 20151016
  Receipt Date: 20151016
  Transmission Date: 20160304
  Serious: Yes (Hospitalization)
  Sender: FDA-Public Use
  Company Number: None

PATIENT
  Age: 74 Year
  Sex: Female
  Weight: 70.08 kg

DRUGS (22)
  1. WELLBUTRIN SR 150 MG TB12 (BUPROPION HCL) [Concomitant]
  2. LOTEMAX 0.5% SUSP (LOTEPREDNOL ETABONATE) [Concomitant]
  3. OXYBUTYNIN CHLORIDE 5 MG TABS (OXYBUTYNIN CHLORIDE) [Concomitant]
  4. DOMPERIDONE [Suspect]
     Active Substance: DOMPERIDONE
     Indication: IMPAIRED GASTRIC EMPTYING
     Route: 048
     Dates: start: 201208
  5. MICARDIS 80 MG TABS (TELMISARTAN) [Concomitant]
  6. ATORVASTATIN CALCIUM 20 MG TABS (ATORVASTATIN CALCIUM) [Concomitant]
  7. OPSUMIT 10 MG TABS (MACITENTAN) [Concomitant]
  8. SPIRONOLACTONE 25 MG ORAL TABS (SPIRONOLACTONE) [Concomitant]
  9. PROAIR HFA 108 (90 BASE) MCG/ACT AERS (ALBUTEROL SULFATE) [Concomitant]
  10. PREMARIN TABS (ESTROGENS CONJUGATED TABS) [Concomitant]
  11. NEXIUM 40 MG PACK (ESOMEPRAZOLE MAGNESIUM) [Concomitant]
  12. RESTASIS 0.05% EMUL (CYCLOSPORINE) [Concomitant]
  13. CLOPIDOGREL BISULFATE 75 MG TABS (CLOPIDOGREL BISULFATE) [Concomitant]
  14. POTASSIUM CHLORIDE ER CR-TABS (POTASSIUM CHLORIDE CR-TABS) [Concomitant]
  15. DESLORATADINE 5 MG TABS (DESLORATADINE) [Concomitant]
  16. IPRATROPIUM BROMIDE SOLN (IPRATROPIUM BROMIDE SOLN) [Concomitant]
  17. FUROSEMIDE 20 MG ORAL TABS (FUROSEMIDE) [Concomitant]
  18. MIRALAX ORAL PACK (POLYETHYLENE GLYCOL 3350) [Concomitant]
  19. ADCIRCA 20 MG TABS (TADALAFIL (PAH)) [Concomitant]
  20. ASPIRIN EC LOW DOSE 81 MG TBEC (ASPIRIN) [Concomitant]
  21. AZELASTINE HCL SOLN (AZELASTINE HCL SOLN) [Concomitant]
  22. DOCUSATE SODIUM 100 MG ORAL TABS (DOCUSATE SODIUM) [Concomitant]

REACTIONS (1)
  - Dyspnoea [None]

NARRATIVE: CASE EVENT DATE: 20150908
